FAERS Safety Report 20392392 (Version 2)
Quarter: 2022Q1

REPORT INFORMATION
  Report Type: Spontaneous
  Country: US (occurrence: US)
  Receive Date: 20220128
  Receipt Date: 20220224
  Transmission Date: 20220424
  Serious: Yes (Hospitalization)
  Sender: FDA-Public Use
  Company Number: US-PFIZER INC-202200114695

PATIENT
  Age: 62 Year
  Sex: Male

DRUGS (1)
  1. BOSULIF [Suspect]
     Active Substance: BOSUTINIB MONOHYDRATE
     Dosage: 200 MG, DAILY
     Route: 048
     Dates: start: 20210822, end: 20220103

REACTIONS (3)
  - Full blood count abnormal [Not Recovered/Not Resolved]
  - Infection [Not Recovered/Not Resolved]
  - Neoplasm progression [Not Recovered/Not Resolved]
